FAERS Safety Report 13453507 (Version 1)
Quarter: 2017Q2

REPORT INFORMATION
  Report Type: Spontaneous
  Country: US (occurrence: US)
  Receive Date: 20170418
  Receipt Date: 20170418
  Transmission Date: 20170830
  Serious: No
  Sender: FDA-Public Use
  Company Number: US-ALLERGAN-1664273US

PATIENT
  Sex: Female
  Weight: 67.57 kg

DRUGS (1)
  1. LATISSE [Suspect]
     Active Substance: BIMATOPROST
     Indication: GROWTH OF EYELASHES
     Dosage: 2 GTT, QHS
     Route: 061
     Dates: start: 201606, end: 201607

REACTIONS (3)
  - Eyelid thickening [Recovering/Resolving]
  - Eyelids pruritus [Recovered/Resolved]
  - Erythema of eyelid [Recovering/Resolving]

NARRATIVE: CASE EVENT DATE: 2016
